FAERS Safety Report 4811000-1 (Version None)
Quarter: 2005Q4

REPORT INFORMATION
  Report Type: 
  Country: None (occurrence: None)
  Receive Date: 20051025
  Receipt Date: 20051017
  Transmission Date: 20060501
  Serious: Yes (Other)
  Sender: FDA-Public Use
  Company Number: 2005143377

PATIENT
  Sex: 0

DRUGS (2)
  1. DILANTIN [Suspect]
     Indication: ILL-DEFINED DISORDER
  2. PREDNISONE [Suspect]
     Indication: ILL-DEFINED DISORDER

REACTIONS (1)
  - OSTEOGENESIS IMPERFECTA [None]
